FAERS Safety Report 7295103-0 (Version None)
Quarter: 2011Q1

REPORT INFORMATION
  Report Type: 
  Country: None (occurrence: None)
  Receive Date: 20110216
  Receipt Date: 20110202
  Transmission Date: 20110831
  Serious: Yes (Hospitalization)
  Sender: FDA-Public Use
  Company Number: US-JNJFOC-20110201409

PATIENT
  Age: 11 Year
  Sex: Female

DRUGS (1)
  1. TYELNOL WARMING COLD MULTI-SYMPTOM NIGHTTIME HONEY LEMON [Suspect]
     Indication: NASOPHARYNGITIS
     Dosage: 15ML, ONCE
     Route: 048

REACTIONS (4)
  - ANXIETY [None]
  - INCORRECT DRUG DOSAGE FORM ADMINISTERED [None]
  - DYSKINESIA [None]
  - NERVOUSNESS [None]
